FAERS Safety Report 15877172 (Version 1)
Quarter: 2019Q1

REPORT INFORMATION
  Report Type: Spontaneous
  Country: FR (occurrence: FR)
  Receive Date: 20190128
  Receipt Date: 20190128
  Transmission Date: 20190417
  Serious: Yes (Hospitalization)
  Sender: FDA-Public Use
  Company Number: FR-SA-2019SA015476

PATIENT
  Age: 68 Year
  Sex: Female
  Weight: 66 kg

DRUGS (4)
  1. LOVENOX [Suspect]
     Active Substance: ENOXAPARIN SODIUM
     Indication: ISCHAEMIC STROKE
     Dosage: 14000 IU, QD
     Route: 058
     Dates: start: 20181217, end: 20181218
  2. AMIODARONE [Concomitant]
     Active Substance: AMIODARONE
     Dosage: UNK UNK, UNK
     Route: 065
  3. ACTILYSE [Concomitant]
     Active Substance: ALTEPLASE
     Dates: start: 20181212
  4. HEPARIN SODIUM. [Suspect]
     Active Substance: HEPARIN SODIUM
     Indication: ISCHAEMIC STROKE
     Dosage: 26440 IU, QD
     Route: 041
     Dates: start: 20181214, end: 20181214

REACTIONS (2)
  - Muscle haemorrhage [Recovering/Resolving]
  - Haemoglobin decreased [Recovered/Resolved]

NARRATIVE: CASE EVENT DATE: 201812
